FAERS Safety Report 23402248 (Version 1)
Quarter: 2024Q1

REPORT INFORMATION
  Report Type: Spontaneous
  Country: US (occurrence: US)
  Receive Date: 20240115
  Receipt Date: 20240115
  Transmission Date: 20240410
  Serious: No
  Sender: FDA-Public Use
  Company Number: US-BRISTOL-MYERS SQUIBB COMPANY-2024-007325

PATIENT
  Age: 75 Year
  Sex: Male
  Weight: 62.6 kg

DRUGS (1)
  1. INREBIC [Suspect]
     Active Substance: FEDRATINIB HYDROCHLORIDE
     Indication: Thrombocytosis
     Route: 048

REACTIONS (1)
  - Skin exfoliation [Not Recovered/Not Resolved]
